FAERS Safety Report 4655775-3 (Version None)
Quarter: 2005Q2

REPORT INFORMATION
  Report Type: 
  Country: None (occurrence: None)
  Receive Date: 20050507
  Receipt Date: 20050324
  Transmission Date: 20051028
  Serious: Yes (Life-Threatening, Hospitalization, Disabling, Other)
  Sender: FDA-Public Use
  Company Number: US-MERCK-0503USA04463

PATIENT
  Age: 83 Year
  Sex: Male
  Weight: 79 kg

DRUGS (8)
  1. VIOXX [Suspect]
     Route: 048
     Dates: end: 20040930
  2. COREG [Concomitant]
     Route: 065
  3. FLOMAX [Concomitant]
     Route: 065
  4. ZOCOR [Concomitant]
     Route: 065
  5. ASPIRIN [Concomitant]
     Route: 065
  6. IMDUR [Concomitant]
     Route: 065
  7. PLAVIX [Concomitant]
     Route: 065
  8. PREVACID [Concomitant]
     Route: 065

REACTIONS (19)
  - ABDOMINAL PAIN UPPER [None]
  - BENIGN PROSTATIC HYPERPLASIA [None]
  - BEREAVEMENT REACTION [None]
  - BLOOD PRESSURE INCREASED [None]
  - CARDIAC FAILURE CONGESTIVE [None]
  - CAROTID BRUIT [None]
  - CHEST DISCOMFORT [None]
  - CORONARY ARTERY DISEASE [None]
  - HYPERTENSION [None]
  - HYPOAESTHESIA [None]
  - HYPOAESTHESIA TEETH [None]
  - ISCHAEMIC CARDIOMYOPATHY [None]
  - JOINT DISLOCATION [None]
  - LACUNAR INFARCTION [None]
  - LYMPHADENOPATHY [None]
  - NASAL SINUS DRAINAGE [None]
  - OEDEMA PERIPHERAL [None]
  - SYNCOPE [None]
  - TRANSIENT ISCHAEMIC ATTACK [None]
